FAERS Safety Report 24341455 (Version 1)
Quarter: 2024Q3

REPORT INFORMATION
  Report Type: Spontaneous
  Country: JP (occurrence: JP)
  Receive Date: 20240920
  Receipt Date: 20240920
  Transmission Date: 20241016
  Serious: Yes (Hospitalization)
  Sender: UNITED THERAPEUTICS
  Company Number: JP-UNITED THERAPEUTICS-UNT-2024-020289

PATIENT
  Age: 78 Year
  Sex: Male

DRUGS (6)
  1. TYVASO [Suspect]
     Active Substance: TREPROSTINIL
     Indication: Pulmonary arterial hypertension
     Dosage: 18 ?G, QID
     Dates: start: 20240626, end: 2024
  2. TYVASO [Suspect]
     Active Substance: TREPROSTINIL
     Indication: Interstitial lung disease
     Dosage: 36 ?G, QID
     Dates: start: 2024
  3. CELLULASE\DIASTASE\LIPASE [Concomitant]
     Active Substance: CELLULASE\DIASTASE\LIPASE
     Indication: Product used for unknown indication
     Dosage: UNK
  4. AZOSEMIDE [Concomitant]
     Active Substance: AZOSEMIDE
     Indication: Product used for unknown indication
     Dosage: UNK
  5. VILDAGLIPTIN [Concomitant]
     Active Substance: VILDAGLIPTIN
     Indication: Product used for unknown indication
     Dosage: UNK
  6. AMLODIPINE [Concomitant]
     Active Substance: AMLODIPINE BESYLATE
     Indication: Product used for unknown indication
     Dosage: UNK

REACTIONS (6)
  - General physical health deterioration [Unknown]
  - Cough [Not Recovered/Not Resolved]
  - Dyspnoea [Not Recovered/Not Resolved]
  - Oxygen saturation decreased [Unknown]
  - Interstitial lung disease [Unknown]
  - Off label use [Unknown]

NARRATIVE: CASE EVENT DATE: 20240101
